FAERS Safety Report 9819312 (Version 1)
Quarter: 2014Q1

REPORT INFORMATION
  Report Type: Spontaneous
  Country: KR (occurrence: None)
  Receive Date: 20140113
  Receipt Date: 20140113
  Transmission Date: 20141002
  Serious: Yes (Other)
  Sender: FDA-Public Use
  Company Number: CO-OR-KR-2013-236

PATIENT
  Sex: Male
  Weight: 2.17 kg

DRUGS (2)
  1. PREDNISOLONE [Suspect]
     Indication: HAEMANGIOMA-THROMBOCYTOPENIA SYNDROME
  2. PREDNISOLONE [Suspect]
     Indication: HAEMANGIOMA-THROMBOCYTOPENIA SYNDROME

REACTIONS (1)
  - Drug ineffective [None]
